FAERS Safety Report 6074813-7 (Version None)
Quarter: 2009Q1

REPORT INFORMATION
  Report Type: 
  Country: None (occurrence: None)
  Receive Date: 20090210
  Receipt Date: 20090210
  Transmission Date: 20090719
  Serious: Yes (Life-Threatening, Hospitalization)
  Sender: FDA-Public Use
  Company Number: None

PATIENT
  Sex: Female
  Weight: 68.0396 kg

DRUGS (1)
  1. REMICADE [Suspect]
     Indication: RHEUMATOID ARTHRITIS
     Dosage: 5.8 MG/KG EVERY 8 WKS IV
     Route: 042
     Dates: start: 20060531, end: 20081021

REACTIONS (3)
  - ADENOCARCINOMA [None]
  - MUELLER'S MIXED TUMOUR [None]
  - PELVIC MASS [None]
